FAERS Safety Report 24571886 (Version 1)
Quarter: 2024Q4

REPORT INFORMATION
  Report Type: Spontaneous
  Country: CN (occurrence: CN)
  Receive Date: 20241101
  Receipt Date: 20241101
  Transmission Date: 20250115
  Serious: Yes (Hospitalization, Other)
  Sender: MERCK
  Company Number: CN-009507513-2410CHN013889

PATIENT
  Age: 76 Year
  Sex: Male

DRUGS (1)
  1. KEYTRUDA [Suspect]
     Active Substance: PEMBROLIZUMAB
     Indication: Colon cancer
     Dosage: 200 MG, Q3W
     Route: 041
     Dates: start: 20240601, end: 20241014

REACTIONS (4)
  - Hypothyroidism [Recovering/Resolving]
  - Blood creatine phosphokinase increased [Recovering/Resolving]
  - Pleural effusion [Recovering/Resolving]
  - Pericardial effusion [Unknown]

NARRATIVE: CASE EVENT DATE: 20241014
